FAERS Safety Report 4617464-0 (Version None)
Quarter: 2005Q1

REPORT INFORMATION
  Report Type: 
  Country: None (occurrence: None)
  Receive Date: 20050322
  Receipt Date: 20050308
  Transmission Date: 20050727
  Serious: Yes (Death)
  Sender: FDA-Public Use
  Company Number: 2005S1001094

PATIENT
  Age: 66 Year
  Sex: Female

DRUGS (10)
  1. CLOZAPINE [Suspect]
     Indication: SCHIZOPHRENIA
     Dosage: SEE IMAGE, PO
     Route: 048
     Dates: start: 20040301
  2. LEVOTHYROXINE SODIUM [Concomitant]
  3. RANITIDINE [Concomitant]
  4. HYDROCHLORIDE [Concomitant]
  5. ACETYLSALICYLIC ACID SRT [Concomitant]
  6. FUROSEMIDE [Concomitant]
  7. POTASSIUM CHLORIDE [Concomitant]
  8. CLONAZEPAM [Concomitant]
  9. VITAMINS NOS [Concomitant]
  10. LAMOTRIGINE [Concomitant]

REACTIONS (1)
  - DEATH [None]
